FAERS Safety Report 26157401 (Version 1)
Quarter: 2025Q4

REPORT INFORMATION
  Report Type: Spontaneous
  Country: US (occurrence: US)
  Receive Date: 20251215
  Receipt Date: 20251215
  Transmission Date: 20260117
  Serious: Yes (Other)
  Sender: SANDOZ
  Company Number: US-SANDOZ-SDZ2025US093283

PATIENT

DRUGS (1)
  1. CLARITHROMYCIN [Suspect]
     Active Substance: CLARITHROMYCIN
     Indication: Neurological symptom
     Dosage: UNK
     Route: 048
     Dates: start: 2017

REACTIONS (2)
  - Drug dependence [Unknown]
  - Product supply issue [Unknown]
